FAERS Safety Report 10757520 (Version 2)
Quarter: 2015Q1

REPORT INFORMATION
  Report Type: Spontaneous
  Country: US (occurrence: US)
  Receive Date: 20150203
  Receipt Date: 20150209
  Transmission Date: 20150721
  Serious: No
  Sender: FDA-Public Use
  Company Number: US-ASTRAZENECA-2015SE08822

PATIENT
  Age: 78 Year

DRUGS (1)
  1. SYMBICORT [Suspect]
     Active Substance: BUDESONIDE\FORMOTEROL FUMARATE DIHYDRATE
     Dosage: 160/4.5, 2 PUFFS, UNKNOWN
     Route: 055

REACTIONS (4)
  - Cough [Unknown]
  - Pneumonia [Unknown]
  - Malaise [Unknown]
  - Wheezing [Unknown]
